FAERS Safety Report 6527013-8 (Version None)
Quarter: 2009Q4

REPORT INFORMATION
  Report Type: 
  Country: None (occurrence: None)
  Receive Date: 20091229
  Receipt Date: 20091223
  Transmission Date: 20100525
  Serious: Yes (Other)
  Sender: FDA-Public Use
  Company Number: 2009SP038379

PATIENT
  Age: 33 Year
  Sex: Female

DRUGS (1)
  1. IMPLANON [Suspect]
     Indication: DRUG USE FOR UNKNOWN INDICATION
     Dosage: 1 DF; SC
     Route: 058
     Dates: start: 20090922

REACTIONS (1)
  - IGA NEPHROPATHY [None]
